FAERS Safety Report 9193013 (Version 1)
Quarter: 2013Q1

REPORT INFORMATION
  Report Type: Spontaneous
  Country: US (occurrence: US)
  Receive Date: 20130327
  Receipt Date: 20130327
  Transmission Date: 20140127
  Serious: Yes (Other)
  Sender: FDA-Public Use
  Company Number: US-PFIZER INC-2013096367

PATIENT
  Age: 57 Year
  Sex: Female
  Weight: 79.37 kg

DRUGS (8)
  1. XANAX [Suspect]
     Indication: ANXIETY
     Dosage: 0.5 MG, 1X/DAY (0.5 OF XANAX, ONE OR TWO A DAY)
     Route: 048
  2. NEXIUM [Concomitant]
     Dosage: 40 MG, UNK
  3. ADVIL [Concomitant]
     Indication: PAIN IN EXTREMITY
     Dosage: UNK (TWO TO SIX TABLETS A DAY)
  4. VITAMIN D [Concomitant]
     Dosage: UNK
  5. ALEVE [Concomitant]
     Dosage: UNK
  6. IBUPROFEN [Concomitant]
     Dosage: UNK
  7. PREDNISOLONE [Concomitant]
     Indication: REACTION TO COLOURING
     Dosage: UNK
  8. PREDNISONE [Concomitant]
     Indication: REACTION TO COLOURING
     Dosage: UNK

REACTIONS (7)
  - Hypertension [Unknown]
  - Electrocardiogram abnormal [Unknown]
  - Hernia [Unknown]
  - Muscle spasms [Unknown]
  - Gastric disorder [Unknown]
  - Diarrhoea [Unknown]
  - Muscle fatigue [Unknown]
